FAERS Safety Report 23231035 (Version 1)
Quarter: 2023Q4

REPORT INFORMATION
  Report Type: Spontaneous
  Country: KR (occurrence: KR)
  Receive Date: 20231127
  Receipt Date: 20231127
  Transmission Date: 20240109
  Serious: Yes (Hospitalization, Other)
  Sender: FDA-Public Use
  Company Number: KR-SUN PHARMACEUTICAL INDUSTRIES LTD-2023R1-420347

PATIENT
  Age: 62 Year
  Sex: Female
  Weight: 56.4 kg

DRUGS (1)
  1. DEXMEDETOMIDINE [Suspect]
     Active Substance: DEXMEDETOMIDINE
     Indication: Cardiac disorder
     Dosage: UNK (3 UG/KG/H)
     Route: 042

REACTIONS (2)
  - Bradycardia [Recovered/Resolved]
  - Haemodynamic instability [Recovered/Resolved]
